FAERS Safety Report 20484299 (Version 1)
Quarter: 2022Q1

REPORT INFORMATION
  Report Type: Spontaneous
  Country: CO (occurrence: CO)
  Receive Date: 20220217
  Receipt Date: 20220217
  Transmission Date: 20220423
  Serious: Yes (Other)
  Sender: FDA-Public Use
  Company Number: CO-BAYER-2022A023700

PATIENT
  Sex: Female

DRUGS (2)
  1. BETAFERON [Suspect]
     Active Substance: INTERFERON BETA-1B
     Indication: Multiple sclerosis
     Dosage: UNK
  2. DEVICE [Suspect]
     Active Substance: DEVICE
     Indication: Multiple sclerosis
     Dosage: UNK

REACTIONS (2)
  - Loss of consciousness [Not Recovered/Not Resolved]
  - Asthenia [Not Recovered/Not Resolved]

NARRATIVE: CASE EVENT DATE: 20211001
